FAERS Safety Report 7580899-0 (Version None)
Quarter: 2011Q2

REPORT INFORMATION
  Report Type: 
  Country: None (occurrence: None)
  Receive Date: 20110629
  Receipt Date: 20110622
  Transmission Date: 20111010
  Serious: Yes (Hospitalization, Other)
  Sender: FDA-Public Use
  Company Number: JP-MERCK-1106USA00728

PATIENT
  Age: 46 Year
  Sex: Male

DRUGS (6)
  1. JANUVIA [Suspect]
     Route: 048
     Dates: start: 20110515
  2. AMARYL [Concomitant]
     Route: 065
     Dates: start: 20091120
  3. COZAAR [Concomitant]
     Route: 048
     Dates: start: 20090724
  4. JANUVIA [Suspect]
     Indication: TYPE 2 DIABETES MELLITUS
     Route: 048
     Dates: start: 20110408, end: 20110101
  5. CRESTOR [Concomitant]
     Route: 065
     Dates: start: 20091009
  6. NITRAZEPAM [Concomitant]
     Route: 065
     Dates: start: 20100901

REACTIONS (3)
  - PULMONARY EMBOLISM [None]
  - PULMONARY INFARCTION [None]
  - PULMONARY HYPERTENSION [None]
